FAERS Safety Report 20987681 (Version 1)
Quarter: 2022Q2

REPORT INFORMATION
  Report Type: Spontaneous
  Country: US (occurrence: None)
  Receive Date: 20220620
  Receipt Date: 20220620
  Transmission Date: 20220720
  Serious: No
  Sender: FDA-Public Use
  Company Number: None

PATIENT
  Age: 49 Year
  Sex: Female
  Weight: 78.75 kg

DRUGS (2)
  1. NIRMATRELVIR [Suspect]
     Active Substance: NIRMATRELVIR
     Indication: COVID-19
     Dosage: FREQUENCY : TWICE A DAY;?
     Route: 048
     Dates: start: 20220609, end: 20220611
  2. RITONAVIR [Suspect]
     Active Substance: RITONAVIR
     Indication: COVID-19
     Dosage: FREQUENCY : TWICE A DAY;?
     Route: 048
     Dates: start: 20220609, end: 20220611

REACTIONS (5)
  - COVID-19 [None]
  - Diarrhoea [None]
  - Taste disorder [None]
  - SARS-CoV-2 test positive [None]
  - Sputum discoloured [None]

NARRATIVE: CASE EVENT DATE: 20220618
